FAERS Safety Report 25288530 (Version 1)
Quarter: 2025Q2

REPORT INFORMATION
  Report Type: Spontaneous
  Country: US (occurrence: US)
  Receive Date: 20250509
  Receipt Date: 20250509
  Transmission Date: 20250717
  Serious: No
  Sender: MILLICENT HOLDINGS
  Company Number: US-Millicent Holdings Ltd.-MILL20250197

PATIENT
  Age: 56 Year
  Sex: Female

DRUGS (3)
  1. INTRAROSA [Suspect]
     Active Substance: PRASTERONE
     Indication: Skin fragility
     Route: 067
     Dates: start: 20250428, end: 20250429
  2. INTRAROSA [Suspect]
     Active Substance: PRASTERONE
     Indication: Sensitive skin
  3. INTRAROSA [Suspect]
     Active Substance: PRASTERONE
     Indication: Pain of skin

REACTIONS (4)
  - Vulvovaginal erythema [Unknown]
  - Vulvovaginal burning sensation [Unknown]
  - Skin warm [Unknown]
  - Off label use [Unknown]

NARRATIVE: CASE EVENT DATE: 20250428
